FAERS Safety Report 5045196-6 (Version None)
Quarter: 2006Q3

REPORT INFORMATION
  Report Type: 
  Country: None (occurrence: None)
  Receive Date: 20060707
  Receipt Date: 20060703
  Transmission Date: 20061208
  Serious: Yes (Hospitalization)
  Sender: FDA-Public Use
  Company Number: 452559

PATIENT
  Age: 89 Year
  Sex: Female

DRUGS (23)
  1. COREG [Suspect]
     Indication: DRUG USE FOR UNKNOWN INDICATION
     Route: 048
  2. SPIRONOLACTONE [Suspect]
     Indication: DRUG USE FOR UNKNOWN INDICATION
  3. CEFAZOLIN [Suspect]
     Indication: DRUG USE FOR UNKNOWN INDICATION
  4. FLUTICASONE PROPIONATE [Suspect]
     Indication: DRUG USE FOR UNKNOWN INDICATION
     Route: 055
  5. PARACETAMOL [Suspect]
     Indication: DRUG USE FOR UNKNOWN INDICATION
  6. MIRTAZAPINE [Suspect]
     Indication: DEPRESSION
     Route: 048
     Dates: end: 20050315
  7. TRAMADOL HCL [Suspect]
     Indication: DRUG USE FOR UNKNOWN INDICATION
  8. DOCUSATE SODIUM [Suspect]
     Indication: DRUG USE FOR UNKNOWN INDICATION
  9. ASPIRIN [Suspect]
     Indication: DRUG USE FOR UNKNOWN INDICATION
  10. FAMOTIDINE [Suspect]
     Indication: DRUG USE FOR UNKNOWN INDICATION
  11. ENOXAPARIN SODIUM [Suspect]
     Indication: DRUG USE FOR UNKNOWN INDICATION
  12. PREDNISONE TAB [Suspect]
     Indication: DRUG USE FOR UNKNOWN INDICATION
  13. FRUSEMIDE [Suspect]
     Indication: DRUG USE FOR UNKNOWN INDICATION
  14. CEPHALEXIN [Suspect]
     Indication: DRUG USE FOR UNKNOWN INDICATION
  15. MAGNESIUM CHLORIDE [Suspect]
     Indication: DRUG USE FOR UNKNOWN INDICATION
  16. PROPANTHELINE BROMIDE [Suspect]
     Indication: DRUG USE FOR UNKNOWN INDICATION
  17. BEXTRA [Suspect]
     Indication: DRUG USE FOR UNKNOWN INDICATION
  18. LOSARTAN POTASSIUM [Suspect]
     Indication: DRUG USE FOR UNKNOWN INDICATION
  19. AMLODIPINE [Suspect]
     Indication: DRUG USE FOR UNKNOWN INDICATION
  20. DARVOCET [Suspect]
     Indication: DRUG USE FOR UNKNOWN INDICATION
  21. DUONEB [Suspect]
     Indication: DRUG USE FOR UNKNOWN INDICATION
     Dates: end: 20050315
  22. VENLAFAXINE HCL [Suspect]
     Indication: DRUG USE FOR UNKNOWN INDICATION
     Dates: end: 20050315
  23. TRAZODONE HCL [Suspect]
     Indication: DRUG USE FOR UNKNOWN INDICATION

REACTIONS (3)
  - HIP FRACTURE [None]
  - HYPONATRAEMIA [None]
  - POSTOPERATIVE INFECTION [None]
